FAERS Safety Report 7814477-2 (Version None)
Quarter: 2011Q4

REPORT INFORMATION
  Report Type: 
  Country: None (occurrence: None)
  Receive Date: 20111014
  Receipt Date: 20111010
  Transmission Date: 20120403
  Serious: Yes (Hospitalization)
  Sender: FDA-Public Use
  Company Number: PHEH2011US06414

PATIENT
  Sex: Female

DRUGS (3)
  1. EXJADE [Suspect]
     Indication: IRON OVERLOAD
     Dosage: 2000 MG, DAILY
     Route: 048
     Dates: start: 20060309
  2. MYDUSYUCS [Concomitant]
     Indication: SICKLE CELL ANAEMIA
     Dosage: 2000 MG,
     Dates: start: 19990511
  3. FOLIC ACID [Concomitant]
     Indication: SICKLE CELL ANAEMIA
     Route: 048

REACTIONS (1)
  - PAIN [None]
